FAERS Safety Report 4299976-5 (Version None)
Quarter: 2004Q1

REPORT INFORMATION
  Report Type: 
  Country: None (occurrence: None)
  Receive Date: 20040218
  Receipt Date: 20040205
  Transmission Date: 20041129
  Serious: Yes (Hospitalization)
  Sender: FDA-Public Use
  Company Number: A044-002-004810

PATIENT
  Age: 80 Year
  Sex: Female
  Weight: 55 kg

DRUGS (6)
  1. ARICEPT [Suspect]
     Indication: DEMENTIA ALZHEIMER'S TYPE
     Dosage: 5 MG, 1 IN 1 D ORAL
     Route: 048
     Dates: start: 20031111, end: 20031125
  2. EDRONAX (REBOXETINE) [Concomitant]
  3. CIPRAMIL (CITALOPRAM HYDROBROMIDE) [Concomitant]
  4. DELIX PLUS (SALUTEC) [Concomitant]
  5. PANTOZOL (PANTOPRAZOLE SODIUM) [Concomitant]
  6. THYROXIN (LEVOTHYROXINE SODIUM) [Concomitant]

REACTIONS (3)
  - ANXIETY [None]
  - DISTURBANCE IN ATTENTION [None]
  - THINKING ABNORMAL [None]
